FAERS Safety Report 23871423 (Version 2)
Quarter: 2024Q2

REPORT INFORMATION
  Report Type: Report from Study
  Country: US (occurrence: US)
  Receive Date: 20240519
  Receipt Date: 20240522
  Transmission Date: 20240717
  Serious: Yes (Hospitalization, Other)
  Sender: FDA-Public Use
  Company Number: US-ABBVIE-5763939

PATIENT
  Age: 65 Year
  Sex: Male
  Weight: 74.842 kg

DRUGS (2)
  1. SKYRIZI [Suspect]
     Active Substance: RISANKIZUMAB-RZAA
     Indication: Psoriasis
     Route: 058
     Dates: start: 2020
  2. METFORMIN [Suspect]
     Active Substance: METFORMIN HYDROCHLORIDE
     Indication: Diabetes mellitus
     Dosage: 2000 MILLIGRAM
     Route: 048

REACTIONS (8)
  - Coma [Recovered/Resolved]
  - Feeding disorder [Unknown]
  - Neuropathy peripheral [Not Recovered/Not Resolved]
  - Nerve injury [Recovering/Resolving]
  - Swollen tongue [Recovered/Resolved]
  - Gait inability [Recovered/Resolved]
  - Weight decreased [Not Recovered/Not Resolved]
  - Renal failure [Recovered/Resolved]

NARRATIVE: CASE EVENT DATE: 20231101
